FAERS Safety Report 9596021 (Version 2)
Quarter: 2013Q4

REPORT INFORMATION
  Report Type: Spontaneous
  Country: GB (occurrence: GB)
  Receive Date: 20131004
  Receipt Date: 20131004
  Transmission Date: 20140711
  Serious: Yes (Other)
  Sender: FDA-Public Use
  Company Number: GB-ABBVIE-12P-167-1000768-00

PATIENT
  Age: 12 Year
  Sex: Male
  Weight: 30 kg

DRUGS (5)
  1. CLARITHROMYCIN [Suspect]
     Indication: HELICOBACTER INFECTION
     Dates: start: 20120928, end: 20121005
  2. DEFERASIROX [Suspect]
     Indication: IRON OVERLOAD
     Dosage: 1250 MG
     Route: 048
     Dates: start: 2009, end: 20121008
  3. DEFERASIROX [Suspect]
     Indication: THALASSAEMIA BETA
  4. OMEPRAZOLE SODIUM [Suspect]
     Indication: HELICOBACTER INFECTION
     Dates: start: 20120927
  5. AMOXICILLIN [Suspect]
     Indication: HELICOBACTER INFECTION
     Dosage: 1 GRAM
     Dates: start: 20120928, end: 20121005

REACTIONS (5)
  - Amylase increased [Recovered/Resolved]
  - Pyrexia [Recovered/Resolved]
  - Pancreatitis [Recovered/Resolved]
  - Vomiting [Recovered/Resolved]
  - Abdominal pain [Recovered/Resolved]
